FAERS Safety Report 13515014 (Version 3)
Quarter: 2017Q3

REPORT INFORMATION
  Report Type: Spontaneous
  Country: IE (occurrence: IE)
  Receive Date: 20170504
  Receipt Date: 20170815
  Transmission Date: 20171127
  Serious: Yes (Other)
  Sender: FDA-Public Use
  Company Number: IE-ASTRAZENECA-2017SE44752

PATIENT
  Age: 61 Year
  Sex: Male

DRUGS (20)
  1. METFORMIN [Interacting]
     Active Substance: METFORMIN HYDROCHLORIDE
     Route: 065
     Dates: start: 201607
  2. FUROSEMIDE/AMILORIDE [Concomitant]
  3. FORXIGA [Interacting]
     Active Substance: DAPAGLIFLOZIN
     Indication: DIABETES MELLITUS
     Dosage: UNKNOWN
     Route: 048
     Dates: end: 20170407
  4. LANTUS [Concomitant]
     Active Substance: INSULIN GLARGINE
  5. ATORVASTATIN [Concomitant]
     Active Substance: ATORVASTATIN
  6. INDAPAMIDE. [Concomitant]
     Active Substance: INDAPAMIDE
  7. FORXIGA [Interacting]
     Active Substance: DAPAGLIFLOZIN
     Indication: DIABETES MELLITUS
     Dosage: 5.0MG UNKNOWN
     Route: 048
     Dates: start: 20170418
  8. GALFER [Concomitant]
     Active Substance: IRON
     Dosage: 305 MILLICURIES
  9. MOVICOL [Concomitant]
     Active Substance: POLYETHYLENE GLYCOL 3350\POTASSIUM CHLORIDE\SODIUM BICARBONATE\SODIUM CHLORIDE
     Dosage: 1.0DF UNKNOWN
  10. JANUVIA [Concomitant]
     Active Substance: SITAGLIPTIN PHOSPHATE
  11. DIAMICRON MR [Concomitant]
     Active Substance: GLICLAZIDE
  12. ELTROXIN [Concomitant]
     Active Substance: LEVOTHYROXINE
  13. FORXIGA [Suspect]
     Active Substance: DAPAGLIFLOZIN
     Indication: DIABETES MELLITUS
     Dosage: 10.0MG UNKNOWN
     Route: 048
     Dates: start: 20160216, end: 20170314
  14. FORXIGA [Interacting]
     Active Substance: DAPAGLIFLOZIN
     Indication: DIABETES MELLITUS
     Dosage: UNKNOWN
     Route: 048
     Dates: end: 201607
  15. METFORMIN [Interacting]
     Active Substance: METFORMIN HYDROCHLORIDE
     Route: 065
     Dates: start: 20170407, end: 20170418
  16. PARACETAMOL [Concomitant]
     Active Substance: ACETAMINOPHEN
  17. SERTRALINE [Concomitant]
     Active Substance: SERTRALINE HYDROCHLORIDE
  18. STILNOCT [Concomitant]
     Active Substance: ZOLPIDEM TARTRATE
  19. ELTROXIN [Concomitant]
     Active Substance: LEVOTHYROXINE
     Dosage: GENERIC
  20. ESOMEPRAZOLE [Concomitant]
     Active Substance: ESOMEPRAZOLE

REACTIONS (2)
  - Oral candidiasis [Recovered/Resolved]
  - Drug interaction [Recovered/Resolved]

NARRATIVE: CASE EVENT DATE: 20170220
